FAERS Safety Report 25886902 (Version 1)
Quarter: 2025Q4

REPORT INFORMATION
  Report Type: Spontaneous
  Country: EU (occurrence: EU)
  Receive Date: 20251006
  Receipt Date: 20251006
  Transmission Date: 20260118
  Serious: Yes (Other)
  Sender: MYLAN
  Company Number: EU-ASTRAZENECA-202509GLO016974ES

PATIENT
  Age: 58 Year
  Sex: Female

DRUGS (12)
  1. TAMOXIFEN [Suspect]
     Active Substance: TAMOXIFEN
     Indication: Invasive lobular breast carcinoma
     Dosage: UNK (FILM-COATED TABLET)
  2. TAMOXIFEN [Suspect]
     Active Substance: TAMOXIFEN
     Dosage: UNK (FILM-COATED TABLET)
     Route: 065
  3. TAMOXIFEN [Suspect]
     Active Substance: TAMOXIFEN
     Dosage: UNK (FILM-COATED TABLET)
     Route: 065
  4. TAMOXIFEN [Suspect]
     Active Substance: TAMOXIFEN
     Dosage: UNK (FILM-COATED TABLET)
  5. RIBOCICLIB [Concomitant]
     Active Substance: RIBOCICLIB
     Indication: Invasive lobular breast carcinoma
     Dosage: 600 MILLIGRAM, QD
  6. RIBOCICLIB [Concomitant]
     Active Substance: RIBOCICLIB
     Dosage: 600 MILLIGRAM, QD
     Route: 065
  7. RIBOCICLIB [Concomitant]
     Active Substance: RIBOCICLIB
     Dosage: 600 MILLIGRAM, QD
     Route: 065
  8. RIBOCICLIB [Concomitant]
     Active Substance: RIBOCICLIB
     Dosage: 600 MILLIGRAM, QD
  9. FULVESTRANT [Concomitant]
     Active Substance: FULVESTRANT
     Indication: Invasive lobular breast carcinoma
     Dosage: 500 MILLIGRAM, MONTHLY (QMONTH)
  10. FULVESTRANT [Concomitant]
     Active Substance: FULVESTRANT
     Dosage: 500 MILLIGRAM, MONTHLY (QMONTH)
     Route: 065
  11. FULVESTRANT [Concomitant]
     Active Substance: FULVESTRANT
     Dosage: 500 MILLIGRAM, MONTHLY (QMONTH)
     Route: 065
  12. FULVESTRANT [Concomitant]
     Active Substance: FULVESTRANT
     Dosage: 500 MILLIGRAM, MONTHLY (QMONTH)

REACTIONS (3)
  - Malignant neoplasm progression [Unknown]
  - Metastases to uterus [Unknown]
  - Endometrial cancer [Unknown]
